FAERS Safety Report 6755578-X (Version None)
Quarter: 2010Q2

REPORT INFORMATION
  Report Type: 
  Country: None (occurrence: None)
  Receive Date: 20100604
  Receipt Date: 20100521
  Transmission Date: 20101027
  Serious: Yes (Hospitalization)
  Sender: FDA-Public Use
  Company Number: PHHY2010US33498

PATIENT
  Age: 54 Year
  Sex: Male
  Weight: 111 kg

DRUGS (1)
  1. RECLAST [Suspect]
     Indication: BONE PAIN
     Dosage: 4 MG/ 100 CC, QW4
     Route: 042
     Dates: start: 20100427

REACTIONS (7)
  - DYSARTHRIA [None]
  - HYPOCALCAEMIA [None]
  - MOVEMENT DISORDER [None]
  - MUSCLE SPASMS [None]
  - TETANY [None]
  - TREMOR [None]
  - TRISMUS [None]
